FAERS Safety Report 12670008 (Version 1)
Quarter: 2016Q3

REPORT INFORMATION
  Report Type: Spontaneous
  Country: GB (occurrence: GB)
  Receive Date: 20160821
  Receipt Date: 20160821
  Transmission Date: 20161109
  Serious: Yes (Other)
  Sender: FDA-Public Use
  Company Number: GB-DEXPHARM-20161780

PATIENT
  Age: 5 Month
  Sex: Female
  Weight: 6.45 kg

DRUGS (4)
  1. RANITIDINE. [Concomitant]
     Active Substance: RANITIDINE
  2. CHLORHEXIDINE-ETHANOL SPRAY [Suspect]
     Active Substance: ALCOHOL\CHLORHEXIDINE GLUCONATE
     Indication: INFECTION PROPHYLAXIS
     Dosage: UNMETERED SPRAY, 0.5% IN ETHANOL 70%
     Route: 061
     Dates: start: 20160412, end: 20160412
  3. TRIMETHOPRIM. [Concomitant]
     Active Substance: TRIMETHOPRIM
  4. GAVISCON [Concomitant]
     Active Substance: ALUMINUM HYDROXIDE\MAGNESIUM CARBONATE

REACTIONS (3)
  - Drug administration error [Unknown]
  - Chemical injury [Recovering/Resolving]
  - Wrong technique in product usage process [None]

NARRATIVE: CASE EVENT DATE: 20160412
